FAERS Safety Report 4999743-0 (Version None)
Quarter: 2006Q2

REPORT INFORMATION
  Report Type: 
  Country: None (occurrence: None)
  Receive Date: 20060511
  Receipt Date: 20060404
  Transmission Date: 20061013
  Serious: Yes (Hospitalization)
  Sender: FDA-Public Use
  Company Number: FR-GLAXOSMITHKLINE-B0418982A

PATIENT
  Age: 25 Year
  Sex: Male

DRUGS (4)
  1. PAROXETINE HYDROCHLORIDE [Suspect]
     Dosage: 20MG PER DAY
     Route: 048
     Dates: start: 20051201, end: 20060202
  2. NEURONTIN [Suspect]
     Dosage: 1200MG PER DAY
     Route: 048
     Dates: start: 20060123, end: 20060202
  3. NEXIUM [Concomitant]
     Dosage: 40MG PER DAY
     Route: 048
     Dates: start: 20051201
  4. ENDOXAN [Concomitant]
     Indication: SARCOIDOSIS
     Dosage: 1000MG CYCLIC
     Route: 042
     Dates: start: 20060131

REACTIONS (4)
  - ALANINE AMINOTRANSFERASE INCREASED [None]
  - ASPARTATE AMINOTRANSFERASE INCREASED [None]
  - GAMMA-GLUTAMYLTRANSFERASE INCREASED [None]
  - PANCREATIC ENZYMES INCREASED [None]
